FAERS Safety Report 17043656 (Version 1)
Quarter: 2019Q4

REPORT INFORMATION
  Report Type: Spontaneous
  Country: US (occurrence: US)
  Receive Date: 20191017
  Receipt Date: 20191017
  Transmission Date: 20200122
  Serious: Yes (Hospitalization)
  Sender: FDA-Public Use
  Company Number: None

PATIENT
  Age: 65 Year
  Sex: Female

DRUGS (14)
  1. DILTIAZEM. [Concomitant]
     Active Substance: DILTIAZEM
  2. PREDNISONE. [Concomitant]
     Active Substance: PREDNISONE
  3. PLAVIX [Concomitant]
     Active Substance: CLOPIDOGREL BISULFATE
  4. TOPROL XL [Concomitant]
     Active Substance: METOPROLOL SUCCINATE
  5. ISOSORB MONO [Concomitant]
     Active Substance: ISOSORBIDE MONONITRATE
  6. NOVOLOG [Concomitant]
     Active Substance: INSULIN ASPART
  7. DOFETILIDE 250MCG [Suspect]
     Active Substance: DOFETILIDE
     Indication: ARRHYTHMIA
     Route: 048
     Dates: start: 20181017
  8. PROVENTIL [Concomitant]
     Active Substance: ALBUTEROL
  9. LIPTIOR [Concomitant]
  10. FISH OIL [Concomitant]
     Active Substance: FISH OIL
  11. NITROSTAT [Concomitant]
     Active Substance: NITROGLYCERIN
  12. LEFLUNOMIDE. [Concomitant]
     Active Substance: LEFLUNOMIDE
  13. ESCITALOPRAM [Concomitant]
     Active Substance: ESCITALOPRAM OXALATE
  14. ARIDUO RESPI INH [Concomitant]

REACTIONS (2)
  - Atrial fibrillation [None]
  - Chronic obstructive pulmonary disease [None]

NARRATIVE: CASE EVENT DATE: 20190814
